FAERS Safety Report 14646275 (Version 2)
Quarter: 2019Q1

REPORT INFORMATION
  Report Type: Report from Study
  Country: US (occurrence: US)
  Receive Date: 20180316
  Receipt Date: 20190315
  Transmission Date: 20190417
  Serious: No
  Sender: FDA-Public Use
  Company Number: PHEH2018US009366

PATIENT
  Sex: Female

DRUGS (4)
  1. SYNTHROID [Concomitant]
     Active Substance: LEVOTHYROXINE SODIUM
  2. COSENTYX [Suspect]
     Active Substance: SECUKINUMAB
     Indication: PSORIASIS
     Dosage: UNK
     Route: 065
     Dates: start: 20161020, end: 20180111
  3. ASPIRIN. [Concomitant]
     Active Substance: ASPIRIN
     Indication: PRODUCT USED FOR UNKNOWN INDICATION
     Route: 065
  4. POTASSIUM [Concomitant]
     Active Substance: POTASSIUM
     Indication: PRODUCT USED FOR UNKNOWN INDICATION
     Route: 065

REACTIONS (2)
  - Urinary tract infection [Unknown]
  - Pustular psoriasis [Unknown]

NARRATIVE: CASE EVENT DATE: 201801
